FAERS Safety Report 7437987-9 (Version None)
Quarter: 2011Q2

REPORT INFORMATION
  Report Type: 
  Country: None (occurrence: None)
  Receive Date: 20110421
  Receipt Date: 20110421
  Transmission Date: 20111010
  Serious: Yes (Hospitalization)
  Sender: FDA-Public Use
  Company Number: None

PATIENT
  Age: 53 Year
  Sex: Female
  Weight: 85 kg

DRUGS (2)
  1. METOPROLOL TARTRATE [Suspect]
     Dosage: 225 MG BID PO
     Route: 048
     Dates: start: 20100318, end: 20100813
  2. METOPROLOL TARTRATE [Suspect]
     Indication: HYPERTENSION
     Dosage: 75 MG BID PO
     Route: 048
     Dates: start: 20100813, end: 20100916

REACTIONS (9)
  - SWELLING FACE [None]
  - HEADACHE [None]
  - HEART RATE INCREASED [None]
  - LOCAL SWELLING [None]
  - RASH [None]
  - ABDOMINAL PAIN [None]
  - NAUSEA [None]
  - LEUKOCYTOSIS [None]
  - BLOOD PRESSURE INCREASED [None]
